FAERS Safety Report 7751945-6 (Version None)
Quarter: 2011Q3

REPORT INFORMATION
  Report Type: 
  Country: None (occurrence: None)
  Receive Date: 20110912
  Receipt Date: 20110829
  Transmission Date: 20111222
  Serious: Yes (Hospitalization, Other)
  Sender: FDA-Public Use
  Company Number: CIP11000523

PATIENT
  Age: 63 Year
  Sex: Female

DRUGS (21)
  1. PREVACID [Concomitant]
  2. METHOTREXATE [Concomitant]
  3. PREDNISONE (PREDFNISONE) [Concomitant]
  4. FLONASE [Concomitant]
  5. CALCIUM CITRATE (CALCIUM CITRATE) [Concomitant]
  6. DILTIAZEM [Concomitant]
  7. COUMADIN [Concomitant]
  8. CELEBREX [Concomitant]
  9. POTASSIUM CHLORIDE [Concomitant]
  10. PLAQUENIL [Concomitant]
  11. AVALIDE [Concomitant]
  12. ACTONEL [Suspect]
     Indication: OSTEOPOROSIS
     Dosage: 35 MG ONCE WEEKLY, ORAL
     Route: 048
     Dates: start: 20021008
  13. HYDROCHLOROTHIAZIDE [Concomitant]
  14. PREMARIN [Concomitant]
  15. MOTRIN [Concomitant]
  16. OMEPRAZOLE [Concomitant]
  17. ACTONEL [Suspect]
     Indication: OSTEOPOROSIS
     Dosage: 5 MG DAILY, ORAL
     Route: 048
     Dates: start: 20010215, end: 20021008
  18. ARAVA [Concomitant]
  19. HUMIRA [Concomitant]
  20. NORVASC [Concomitant]
  21. AVAPRO [Concomitant]

REACTIONS (14)
  - FALL [None]
  - TOOTH FRACTURE [None]
  - DYSSTASIA [None]
  - PAIN IN EXTREMITY [None]
  - ARTHRALGIA [None]
  - COMPLICATED FRACTURE [None]
  - STRESS FRACTURE [None]
  - JOINT STIFFNESS [None]
  - ORAL TORUS [None]
  - THROMBOSIS [None]
  - MOBILITY DECREASED [None]
  - BURSITIS [None]
  - FEMUR FRACTURE [None]
  - DENTAL CARIES [None]
